FAERS Safety Report 10045617 (Version 1)
Quarter: 2014Q1

REPORT INFORMATION
  Report Type: Spontaneous
  Country: US (occurrence: US)
  Receive Date: 20140328
  Receipt Date: 20140328
  Transmission Date: 20141002
  Serious: Yes (Hospitalization)
  Sender: FDA-Public Use
  Company Number: US-B.I. PHARMACEUTICALS,INC./RIDGEFIELD-2014-BI-12947BP

PATIENT
  Age: 76 Year
  Sex: Male
  Weight: 88 kg

DRUGS (3)
  1. PRADAXA [Suspect]
     Indication: ATRIAL FIBRILLATION
     Dosage: 300 MG
     Route: 048
     Dates: start: 201103, end: 201308
  2. PRADAXA [Suspect]
     Route: 065
     Dates: start: 201308
  3. OMEPRAZOLE [Concomitant]
     Indication: GASTROOESOPHAGEAL REFLUX DISEASE
     Dosage: 80 MG
     Route: 048

REACTIONS (5)
  - Ulcer haemorrhage [Recovered/Resolved]
  - Haematemesis [Recovered/Resolved]
  - Meniscus injury [Recovered/Resolved]
  - Arthralgia [Not Recovered/Not Resolved]
  - Epistaxis [Recovered/Resolved]
